FAERS Safety Report 10035920 (Version 1)
Quarter: 2014Q1

REPORT INFORMATION
  Report Type: Spontaneous
  Country: IT (occurrence: IT)
  Receive Date: 20140325
  Receipt Date: 20140325
  Transmission Date: 20141002
  Serious: Yes (Other)
  Sender: FDA-Public Use
  Company Number: IT-ACTAVIS-2014-05393

PATIENT
  Age: 80 Year
  Sex: Female
  Weight: 56 kg

DRUGS (10)
  1. FLUOROURACIL (UNKNOWN) [Suspect]
     Indication: COLON CANCER
     Dosage: 420 MG, CYCLICAL
     Route: 040
     Dates: start: 20130130, end: 20130611
  2. FLUOROURACIL (UNKNOWN) [Suspect]
     Dosage: 2520 MG, CYCLICAL
     Route: 041
     Dates: start: 20130130, end: 20130611
  3. ERBITUX [Suspect]
     Indication: COLON CANCER
     Dosage: 700 MG, CYCLICAL
     Route: 042
     Dates: start: 20130130, end: 20131211
  4. PLAUNAZIDE [Concomitant]
     Indication: PRODUCT USED FOR UNKNOWN INDICATION
     Dosage: UNK
  5. LANOXIN [Concomitant]
     Indication: PRODUCT USED FOR UNKNOWN INDICATION
     Dosage: UNK
  6. RYTMONORM [Concomitant]
     Indication: PRODUCT USED FOR UNKNOWN INDICATION
     Dosage: UNK
  7. NOVORAPID [Concomitant]
     Indication: PRODUCT USED FOR UNKNOWN INDICATION
     Dosage: UNK
  8. LEVEMIR [Concomitant]
     Indication: PRODUCT USED FOR UNKNOWN INDICATION
     Dosage: UNK
  9. LEVOFOLINIC ACID [Concomitant]
     Indication: PRODUCT USED FOR UNKNOWN INDICATION
     Dosage: 210 MG, UNK
     Route: 042
     Dates: start: 20130130, end: 20130611
  10. IRINOTECAN (UNKNOWN) [Suspect]
     Indication: COLON CANCER
     Dosage: 13 MG, CYCLICAL
     Route: 042
     Dates: start: 20130130, end: 20130611

REACTIONS (1)
  - Herpes zoster [Unknown]
